FAERS Safety Report 5385395-7 (Version None)
Quarter: 2007Q3

REPORT INFORMATION
  Report Type: 
  Country: None (occurrence: None)
  Receive Date: 20070712
  Receipt Date: 20070702
  Transmission Date: 20080115
  Serious: Yes (Other)
  Sender: FDA-Public Use
  Company Number: JP-ROCHE-496793

PATIENT
  Age: 65 Year
  Sex: Female

DRUGS (4)
  1. TAMIFLU [Suspect]
     Indication: INFLUENZA
     Route: 048
     Dates: start: 20070304, end: 20070306
  2. CALONAL [Concomitant]
     Route: 048
     Dates: start: 20070304, end: 20070304
  3. MUCODYNE [Concomitant]
     Route: 048
  4. 1 CONCOMITANT DRUG [Concomitant]
     Dosage: REPORTED AS OTHER ANTIALLERGENIC AGENTS (UNKNOWNDRUG).
     Route: 048

REACTIONS (1)
  - HYPOTHERMIA [None]
